FAERS Safety Report 5661089-5 (Version None)
Quarter: 2008Q1

REPORT INFORMATION
  Report Type: 
  Country: None (occurrence: None)
  Receive Date: 20080305
  Receipt Date: 20080222
  Transmission Date: 20080703
  Serious: Yes (Other)
  Sender: FDA-Public Use
  Company Number: 2008004536

PATIENT
  Age: 61 Year
  Sex: Male
  Weight: 68.9467 kg

DRUGS (7)
  1. LISTERINE WHITENING PRE-BRUSH RINSE (NO ACTIVE INGREDIENT) [Suspect]
     Indication: DENTAL CARE
     Dosage: 2 TEASPOONFULS, TWICE DAILY, ORAL
     Route: 048
  2. ATENOLOL [Concomitant]
  3. DOXAZOSIN MESYLATE [Concomitant]
  4. TRIAMTHIAZID (HYDROCHLOROTHIAZIDE, TRIAMTERENE) [Concomitant]
  5. NORVASC [Concomitant]
  6. ASPIRIN [Concomitant]
  7. LIPITOR [Concomitant]

REACTIONS (3)
  - APHTHOUS STOMATITIS [None]
  - BLISTER [None]
  - GINGIVAL BLEEDING [None]
